FAERS Safety Report 5739138-5 (Version None)
Quarter: 2008Q2

REPORT INFORMATION
  Report Type: 
  Country: None (occurrence: None)
  Receive Date: 20080515
  Receipt Date: 20080509
  Transmission Date: 20081010
  Serious: Yes (Death, Hospitalization)
  Sender: FDA-Public Use
  Company Number: A0727972A

PATIENT
  Age: 54 Year
  Sex: Male
  Weight: 49 kg

DRUGS (2)
  1. SERETIDE [Suspect]
     Indication: EMPHYSEMA
     Dates: start: 20050501, end: 20080405
  2. COMBIVENT [Concomitant]
     Dates: start: 20040101, end: 20080405

REACTIONS (4)
  - CONDITION AGGRAVATED [None]
  - EMPHYSEMA [None]
  - INFECTION [None]
  - PNEUMONIA [None]
